FAERS Safety Report 5616608-1 (Version None)
Quarter: 2008Q1

REPORT INFORMATION
  Report Type: 
  Country: None (occurrence: None)
  Receive Date: 20080207
  Receipt Date: 20070918
  Transmission Date: 20080703
  Serious: No
  Sender: FDA-Public Use
  Company Number: A0682708A

PATIENT
  Age: 41 Year
  Sex: Male

DRUGS (2)
  1. PAXIL CR [Suspect]
     Indication: ANXIETY DISORDER
     Dosage: 12.5MG SEE DOSAGE TEXT
     Route: 048
     Dates: start: 20030101
  2. AMBIEN [Concomitant]
     Route: 048

REACTIONS (2)
  - DEPRESSION [None]
  - SLEEP DISORDER [None]
